FAERS Safety Report 9501262 (Version 3)
Quarter: 2013Q4

REPORT INFORMATION
  Report Type: Spontaneous
  Country: US (occurrence: None)
  Receive Date: 20130107
  Receipt Date: 20131226
  Transmission Date: 20140711
  Serious: Yes (Other)
  Sender: FDA-Public Use
  Company Number: PHEH2012US021450

PATIENT
  Age: 30 Year
  Sex: Male
  Weight: 99.8 kg

DRUGS (1)
  1. GILENYA [Suspect]
     Indication: MULTIPLE SCLEROSIS
     Route: 048
     Dates: start: 20121031, end: 20121107

REACTIONS (8)
  - Anxiety [None]
  - Chest pain [None]
  - Feeling abnormal [None]
  - Neck pain [None]
  - Photophobia [None]
  - Chest discomfort [None]
  - Cognitive disorder [None]
  - Headache [None]
